FAERS Safety Report 5853258-6 (Version None)
Quarter: 2008Q3

REPORT INFORMATION
  Report Type: 
  Country: None (occurrence: None)
  Receive Date: 20080820
  Receipt Date: 20080811
  Transmission Date: 20090109
  Serious: No
  Sender: FDA-Public Use
  Company Number: DSU-2008-01214

PATIENT
  Age: 68 Year
  Sex: Female
  Weight: 81.6475 kg

DRUGS (1)
  1. WELCHOL [Suspect]
     Indication: HYPERCHOLESTEROLAEMIA
     Dosage: 3750 MG (3750 MG, QD), PER ORAL
     Route: 048
     Dates: start: 20080804, end: 20080804

REACTIONS (1)
  - RETCHING [None]
